FAERS Safety Report 8507176-5 (Version None)
Quarter: 2012Q3

REPORT INFORMATION
  Report Type: 
  Country: None (occurrence: None)
  Receive Date: 20120712
  Receipt Date: 20120628
  Transmission Date: 20120928
  Serious: Yes (Death)
  Sender: FDA-Public Use
  Company Number: US-MYLANLABS-2011S1000534

PATIENT
  Age: 54 Year
  Sex: Female
  Weight: 136.08 kg

DRUGS (14)
  1. ACTOS [Concomitant]
  2. CYMBALTA [Concomitant]
  3. HYDROCODONE BITARTRATE AND ACETAMINOPHEN [Concomitant]
     Dosage: 10MG/500MG EVERY 6 HOURS PRN
  4. SOMA [Concomitant]
     Dosage: EVERY 4-6 HOURS
     Route: 048
  5. XANAX [Concomitant]
  6. LANTUS [Concomitant]
     Dosage: 10MG/500MG EVERY 6 HOURS PRN
     Dates: start: 20080805
  7. HUMALOG [Concomitant]
     Route: 058
  8. TRAZODONE HYDROCHLORIDE [Concomitant]
  9. LEVOTHYROXINE SODIUM [Concomitant]
  10. FENTANYL-100 [Suspect]
     Indication: PAIN
     Dosage: CHANGE Q3D
     Route: 062
     Dates: end: 20090106
  11. COREG CR [Concomitant]
  12. ATACAND [Concomitant]
  13. LIPITOR [Concomitant]
  14. FENTANYL-100 [Suspect]
     Dosage: CHANGE Q3D
     Route: 062
     Dates: start: 20090106, end: 20090108

REACTIONS (2)
  - TOXICITY TO VARIOUS AGENTS [None]
  - OVERDOSE [None]
